FAERS Safety Report 9261405 (Version 1)
Quarter: 2013Q2

REPORT INFORMATION
  Report Type: Spontaneous
  Country: FR (occurrence: FR)
  Receive Date: 20130429
  Receipt Date: 20130429
  Transmission Date: 20140414
  Serious: Yes (Hospitalization, Other)
  Sender: FDA-Public Use
  Company Number: FR-BRISTOL-MYERS SQUIBB COMPANY-18816413

PATIENT
  Age: 86 Year
  Sex: Male

DRUGS (16)
  1. COUMADINE [Suspect]
     Indication: ATRIAL FIBRILLATION
     Route: 048
     Dates: end: 20130213
  2. CORDARONE [Interacting]
     Indication: ACUTE RESPIRATORY FAILURE
     Dosage: TAB
     Dates: start: 20130208
  3. OMEPRAZOLE [Concomitant]
     Route: 048
  4. LASILIX [Concomitant]
     Dosage: TAB
  5. RAMIPRIL [Concomitant]
  6. LERCAN [Concomitant]
     Dosage: TAB
  7. VASTEN TABS 40 MG [Concomitant]
  8. SILODOSIN [Concomitant]
     Dosage: CAPS
  9. KALEORID [Concomitant]
     Dosage: TAB
     Route: 048
     Dates: start: 20130208
  10. SINGULAIR [Concomitant]
     Route: 048
     Dates: start: 20130208
  11. PARACETAMOL [Concomitant]
     Route: 048
     Dates: start: 20130208
  12. INVANZ [Concomitant]
     Dosage: FORMULATION-INVANZ 1G POWDER FOR SOL FOR INF
     Route: 042
     Dates: start: 20130208
  13. INSULATARD [Concomitant]
     Route: 058
  14. SPIRIVA [Concomitant]
     Route: 055
  15. BRICANYL [Concomitant]
     Dosage: 1DF=1 INHALATION
     Route: 055
     Dates: start: 20130208
  16. ATROVENT [Concomitant]
     Dosage: 1DF=1 INHALATION
     Route: 055
     Dates: start: 20130208

REACTIONS (4)
  - Abdominal wall haematoma [Recovering/Resolving]
  - Fall [Recovering/Resolving]
  - Respiratory failure [Recovering/Resolving]
  - Drug interaction [Unknown]
